FAERS Safety Report 20637203 (Version 2)
Quarter: 2022Q1

REPORT INFORMATION
  Report Type: Spontaneous
  Country: BR (occurrence: None)
  Receive Date: 20220325
  Receipt Date: 20220330
  Transmission Date: 20220424
  Serious: Yes (Death, Other)
  Sender: FDA-Public Use
  Company Number: 2022A122779

PATIENT
  Age: 16697 Day
  Sex: Male

DRUGS (1)
  1. LYNPARZA [Suspect]
     Active Substance: OLAPARIB
     Indication: Pancreatic carcinoma metastatic
     Route: 048
     Dates: start: 201904

REACTIONS (2)
  - Death [Fatal]
  - Metastases to peritoneum [Unknown]

NARRATIVE: CASE EVENT DATE: 20211218
